FAERS Safety Report 21099058 (Version 1)
Quarter: 2022Q3

REPORT INFORMATION
  Report Type: Other
  Country: None (occurrence: CO)
  Receive Date: 20220719
  Receipt Date: 20220719
  Transmission Date: 20221026
  Serious: Yes (Other)
  Sender: FDA-Public Use
  Company Number: CO-Appco Pharma LLC-2131000

PATIENT
  Age: 22 Year
  Sex: Female

DRUGS (2)
  1. LABETALOL HYDROCHLORIDE [Suspect]
     Active Substance: LABETALOL HYDROCHLORIDE
     Indication: Product used for unknown indication
     Route: 065
  2. MAGNESIUM SULFATE [Suspect]
     Active Substance: MAGNESIUM SULFATE
     Route: 065

REACTIONS (4)
  - Exposure during pregnancy [Unknown]
  - Drug ineffective [Unknown]
  - Caesarean section [Unknown]
  - Abortion induced [Unknown]
